FAERS Safety Report 4656723-2 (Version None)
Quarter: 2005Q2

REPORT INFORMATION
  Report Type: 
  Country: None (occurrence: None)
  Receive Date: 20050506
  Receipt Date: 20050427
  Transmission Date: 20051028
  Serious: Yes (Death)
  Sender: FDA-Public Use
  Company Number: 2005-04-2270

PATIENT
  Sex: Male

DRUGS (12)
  1. SALBUTAMOL SULPHATE ORAL AEROSOL [Suspect]
     Dosage: UNKNOWN ORAL AER INH
     Route: 055
  2. TIOTROPIUM BROMIDE [Suspect]
     Dosage: UNKNOWN
     Route: 065
  3. COMBIVENT [Suspect]
     Dosage: UNKNOWN ORAL AER INH
     Route: 048
  4. CITALOPRAM [Suspect]
     Dosage: UNKNOWN
     Route: 065
  5. LOSARTAN POTASSIUM [Suspect]
     Dosage: UNKNOWN
     Route: 065
  6. MOMETASONE FUROATE [Suspect]
     Dosage: UNKNOWN
     Route: 065
  7. NYSTATIN [Suspect]
     Dosage: UNKNOWN
     Route: 065
  8. OXYGEN [Suspect]
     Dosage: UNKNOWN
     Route: 065
  9. PHOLCODINE [Suspect]
     Dosage: UNKNOWN
     Route: 065
  10. SERETIDE (SALMETEROL XINAFOATE/FLUTICASONE PROPIONAT [Suspect]
     Dosage: UNKNOWN
     Route: 065
  11. XALATAN [Suspect]
     Dosage: UNKNOWN OPHTHALMIC
     Route: 047
  12. ZOPICLONE [Suspect]
     Dosage: UNKNOWN
     Route: 065

REACTIONS (1)
  - CHRONIC OBSTRUCTIVE AIRWAYS DISEASE EXACERBATED [None]
